FAERS Safety Report 5834078-5 (Version None)
Quarter: 2008Q3

REPORT INFORMATION
  Report Type: 
  Country: None (occurrence: None)
  Receive Date: 20080805
  Receipt Date: 20080728
  Transmission Date: 20090109
  Serious: Yes (Other)
  Sender: FDA-Public Use
  Company Number: GR-ABBOTT-08P-066-0452821-00

PATIENT
  Age: 64 Year
  Sex: Male
  Weight: 87 kg

DRUGS (2)
  1. KALETRA [Suspect]
     Indication: HIV INFECTION
     Dosage: 2 TABS, DAILY
     Route: 048
  2. TRUVADA [Suspect]
     Indication: HIV INFECTION
     Dosage: 1 TAB, 300MG/200MG, DAILY
     Route: 048

REACTIONS (5)
  - OPTIC NEURITIS [None]
  - RETINAL DISORDER [None]
  - RETINAL ISCHAEMIA [None]
  - RETINOPATHY [None]
  - VITRITIS [None]
